FAERS Safety Report 6122479-X (Version None)
Quarter: 2009Q1

REPORT INFORMATION
  Report Type: 
  Country: None (occurrence: None)
  Receive Date: 20090318
  Receipt Date: 20081215
  Transmission Date: 20090719
  Serious: No
  Sender: FDA-Public Use
  Company Number: US-ASTRAZENECA-2008UW27985

PATIENT
  Age: 71 Year
  Sex: Female

DRUGS (5)
  1. SYMBICORT [Suspect]
     Indication: ASTHMA
     Dosage: 160/4.5, 2 PUFFS TWICE DAILY
     Route: 055
     Dates: start: 20080701, end: 20081212
  2. HYDROCHLOROTHIAZIDE [Concomitant]
  3. ZITHROMAX [Concomitant]
     Dates: end: 20081213
  4. PROAIR HFA [Concomitant]
     Indication: ASTHMA PROPHYLAXIS
  5. PROAIR HFA [Concomitant]
     Indication: ASTHMA

REACTIONS (4)
  - BLOOD GLUCOSE INCREASED [None]
  - FATIGUE [None]
  - RESPIRATORY DISORDER [None]
  - WHEEZING [None]
